FAERS Safety Report 8476257-7 (Version None)
Quarter: 2012Q2

REPORT INFORMATION
  Report Type: 
  Country: None (occurrence: None)
  Receive Date: 20120628
  Receipt Date: 20120618
  Transmission Date: 20120825
  Serious: Yes (Hospitalization)
  Sender: FDA-Public Use
  Company Number: AR-SANOFI-AVENTIS-2012SA043777

PATIENT
  Age: 28 Year
  Sex: Female

DRUGS (4)
  1. SILDENAFIL CITRATE [Suspect]
     Indication: PULMONARY HYPERTENSION
     Route: 065
     Dates: start: 20100101
  2. AZATHIOPRINE [Concomitant]
     Dates: start: 20100101, end: 20110101
  3. LEFLUNOMIDE [Suspect]
     Indication: RHEUMATOID ARTHRITIS
     Route: 065
     Dates: start: 20080101, end: 20100101
  4. PREDNISONE TAB [Concomitant]

REACTIONS (12)
  - DYSPNOEA EXERTIONAL [None]
  - TACHYPNOEA [None]
  - DILATATION VENTRICULAR [None]
  - VENTRICULAR DYSKINESIA [None]
  - RIGHT VENTRICULAR SYSTOLIC PRESSURE INCREASED [None]
  - MATERNAL EXPOSURE DURING PREGNANCY [None]
  - PULMONARY HYPERTENSION [None]
  - DYSPNOEA AT REST [None]
  - SINUS TACHYCARDIA [None]
  - TRICUSPID VALVE INCOMPETENCE [None]
  - OEDEMA PERIPHERAL [None]
  - RIGHT VENTRICULAR HYPERTROPHY [None]
